FAERS Safety Report 5600682-2 (Version None)
Quarter: 2008Q1

REPORT INFORMATION
  Report Type: 
  Country: None (occurrence: None)
  Receive Date: 20080123
  Receipt Date: 20080114
  Transmission Date: 20080703
  Serious: Yes (Other)
  Sender: FDA-Public Use
  Company Number: US-ABBOTT-08P-163-0433695-00

PATIENT
  Sex: Female
  Weight: 50.848 kg

DRUGS (19)
  1. HUMIRA [Suspect]
     Indication: CROHN'S DISEASE
     Route: 058
     Dates: start: 20070301, end: 20070301
  2. HUMIRA [Suspect]
     Route: 058
  3. HUMIRA [Suspect]
     Route: 058
  4. MESALAMINE [Concomitant]
     Indication: CROHN'S DISEASE
     Route: 048
  5. MERCAPTOPURINE [Concomitant]
     Indication: CROHN'S DISEASE
     Route: 048
  6. PREGABALIN [Concomitant]
     Indication: PAIN
     Route: 048
  7. PREGABALIN [Concomitant]
     Indication: CROHN'S DISEASE
  8. RIZATRIPTAN BENZOATE [Concomitant]
     Indication: CROHN'S DISEASE
     Route: 048
  9. AXOTAL [Concomitant]
     Indication: CROHN'S DISEASE
     Route: 048
  10. TRAMADOL HCL [Concomitant]
     Indication: CROHN'S DISEASE
     Route: 048
  11. DICYCLOVERINE [Concomitant]
     Indication: CROHN'S DISEASE
     Route: 048
  12. LOMOTIL [Concomitant]
     Indication: CROHN'S DISEASE
     Route: 048
  13. PHENERGAN HCL [Concomitant]
     Indication: CROHN'S DISEASE
     Route: 048
  14. MULTI-VITAMIN [Concomitant]
     Indication: VITAMIN SUPPLEMENTATION
     Route: 048
  15. FOLIC ACID [Concomitant]
     Indication: VITAMIN SUPPLEMENTATION
     Route: 048
  16. CALCIUM GLUCONATE [Concomitant]
     Indication: MINERAL SUPPLEMENTATION
     Route: 048
  17. DOXYCYCLINE [Concomitant]
     Indication: CROHN'S DISEASE
     Route: 048
  18. BUDESONIDE [Concomitant]
     Indication: CROHN'S DISEASE
     Route: 048
  19. CYLEXA [Concomitant]
     Indication: DRUG USE FOR UNKNOWN INDICATION
     Route: 048

REACTIONS (2)
  - DYSPNOEA EXERTIONAL [None]
  - EPILEPSY [None]
